FAERS Safety Report 4691679-8 (Version None)
Quarter: 2005Q2

REPORT INFORMATION
  Report Type: 
  Country: None (occurrence: None)
  Receive Date: 20050616
  Receipt Date: 20050604
  Transmission Date: 20051028
  Serious: Yes (Hospitalization)
  Sender: FDA-Public Use
  Company Number: US-JNJFOC-20050602345

PATIENT
  Sex: Female

DRUGS (11)
  1. EXTRA STRENGTH TYLENOL [Suspect]
     Route: 049
  2. EXTRA STRENGTH TYLENOL [Suspect]
     Indication: SCIATICA
     Route: 049
  3. INSULIN [Concomitant]
  4. ASPIRIN [Concomitant]
  5. TRAMADOL [Concomitant]
  6. NEURONTIN [Concomitant]
  7. HEART MEDICATIONS [Concomitant]
  8. METOPROLOL [Concomitant]
  9. LISINOPRIL [Concomitant]
  10. PREVACID [Concomitant]
  11. LIPITOR [Concomitant]

REACTIONS (2)
  - BURNING SENSATION [None]
  - CARDIAC DISORDER [None]
